FAERS Safety Report 5210530-0 (Version None)
Quarter: 2007Q1

REPORT INFORMATION
  Report Type: 
  Country: None (occurrence: None)
  Receive Date: 20070117
  Receipt Date: 20070105
  Transmission Date: 20070707
  Serious: Yes (Hospitalization)
  Sender: FDA-Public Use
  Company Number: HQWYE519505JAN07

PATIENT
  Age: 21 Year
  Sex: Male

DRUGS (3)
  1. ETANERCEPT [Suspect]
     Indication: SPONDYLITIS
     Dates: start: 20050501
  2. ISONIAZID [Concomitant]
     Indication: ANTIBIOTIC PROPHYLAXIS
     Dosage: UNKNOWN
  3. METHOTREXATE [Concomitant]

REACTIONS (1)
  - CARCINOID TUMOUR [None]
